FAERS Safety Report 4797310-5 (Version None)
Quarter: 2005Q4

REPORT INFORMATION
  Report Type: 
  Country: None (occurrence: None)
  Receive Date: 20051011
  Receipt Date: 20051011
  Transmission Date: 20060501
  Serious: Yes (Life-Threatening, Hospitalization, Other)
  Sender: FDA-Public Use
  Company Number: None

PATIENT
  Age: 51 Year
  Sex: Male
  Weight: 73 kg

DRUGS (2)
  1. PENICILLIN [Suspect]
     Indication: PNEUMONIA
     Dates: start: 20050416
  2. PENICILLIN [Suspect]
     Indication: SEPSIS
     Dates: start: 20050416

REACTIONS (3)
  - ERYTHEMA MULTIFORME [None]
  - RASH [None]
  - STEVENS-JOHNSON SYNDROME [None]
